FAERS Safety Report 4494167-7 (Version None)
Quarter: 2004Q4

REPORT INFORMATION
  Report Type: 
  Country: None (occurrence: None)
  Receive Date: 20041102
  Receipt Date: 20041018
  Transmission Date: 20050328
  Serious: Yes (Death)
  Sender: FDA-Public Use
  Company Number: 2004079485

PATIENT
  Age: 26 Year
  Sex: Female

DRUGS (6)
  1. VIRACEPT [Suspect]
     Indication: HIV INFECTION
     Dosage: 6 TABLETS (1 D)
     Dates: start: 19980603
  2. STAVUDINE (STAVUDINE) [Suspect]
     Indication: HIV INFECTION
     Dosage: 60 MG (1 D)
     Dates: start: 19980603
  3. DIDANOSINE [Suspect]
     Indication: HIV INFECTION
     Dosage: 2 TABLETS (1 D)
     Dates: start: 19980603
  4. NEVIRAPINE (NEVIRAPINE) [Suspect]
     Indication: HIV INFECTION
     Dosage: 1 TABLET (1 D)
     Dates: start: 19980928
  5. ZIDOVUDINE [Suspect]
     Indication: HIV INFECTION
     Dosage: 500 MG (1 D)
     Dates: start: 19940401
  6. LAMIVUDINE (LAMIVUDINE) [Suspect]
     Indication: HIV INFECTION
     Dosage: 300 MG (1 D)
     Dates: start: 19971223

REACTIONS (11)
  - DRUG EXPOSURE DURING PREGNANCY [None]
  - HERPES ZOSTER [None]
  - INTRA-UTERINE DEATH [None]
  - MEAN CELL VOLUME INCREASED [None]
  - POLLAKIURIA [None]
  - PREGNANCY [None]
  - PROTEIN URINE PRESENT [None]
  - RUBELLA ANTIBODY POSITIVE [None]
  - VIRAL LOAD INCREASED [None]
  - WEIGHT DECREASED [None]
  - WHITE BLOOD CELL COUNT DECREASED [None]
